FAERS Safety Report 7217124-6 (Version None)
Quarter: 2011Q1

REPORT INFORMATION
  Report Type: 
  Country: None (occurrence: None)
  Receive Date: 20110110
  Receipt Date: 20110106
  Transmission Date: 20110831
  Serious: Yes (Congenital Anomaly, Other)
  Sender: FDA-Public Use
  Company Number: US-BRISTOL-MYERS SQUIBB COMPANY-15475148

PATIENT
  Sex: Male

DRUGS (1)
  1. ABILIFY [Suspect]
     Route: 064

REACTIONS (2)
  - ANAL ATRESIA [None]
  - OESOPHAGEAL ATRESIA [None]
